FAERS Safety Report 4744654-9 (Version None)
Quarter: 2005Q3

REPORT INFORMATION
  Report Type: 
  Country: None (occurrence: None)
  Receive Date: 20050815
  Receipt Date: 20050804
  Transmission Date: 20060218
  Serious: Yes (Death)
  Sender: FDA-Public Use
  Company Number: US-JNJFOC-20050801254

PATIENT
  Sex: Female

DRUGS (14)
  1. INFLIXIMAB [Suspect]
     Indication: RHEUMATOID ARTHRITIS
     Route: 042
     Dates: start: 20000606, end: 20050222
  2. AXID [Concomitant]
  3. FOSAMAX [Concomitant]
  4. LASIX [Concomitant]
  5. METHOTREXATE [Concomitant]
  6. PREDNISONE [Concomitant]
  7. NEBULIZER [Concomitant]
  8. NEXIUM [Concomitant]
  9. ADVAIR DISKUS 100/50 [Concomitant]
  10. ADVAIR DISKUS 100/50 [Concomitant]
  11. ZOCOR [Concomitant]
  12. ACCOLATE [Concomitant]
  13. SEREVENT [Concomitant]
  14. PULMICORT [Concomitant]

REACTIONS (1)
  - COLON CANCER [None]
